FAERS Safety Report 6346023-7 (Version None)
Quarter: 2009Q3

REPORT INFORMATION
  Report Type: 
  Country: None (occurrence: None)
  Receive Date: 20090909
  Receipt Date: 20090831
  Transmission Date: 20100115
  Serious: Yes (Other)
  Sender: FDA-Public Use
  Company Number: DK-NOVOPROD-291179

PATIENT
  Age: 63 Year
  Sex: Female
  Weight: 65 kg

DRUGS (1)
  1. VAGIFEM [Suspect]
     Indication: DRUG USE FOR UNKNOWN INDICATION
     Dates: start: 20090325, end: 20090517

REACTIONS (5)
  - ECZEMA [None]
  - ERYSIPELAS [None]
  - OEDEMA PERIPHERAL [None]
  - PRURITUS [None]
  - RASH [None]
